FAERS Safety Report 4830410-X (Version None)
Quarter: 2005Q4

REPORT INFORMATION
  Report Type: 
  Country: None (occurrence: None)
  Receive Date: 20051117
  Receipt Date: 20051107
  Transmission Date: 20060501
  Serious: Yes (Other)
  Sender: FDA-Public Use
  Company Number: JP-SANOFI-SYNTHELABO-A01200507589

PATIENT
  Age: 24 Year
  Sex: Female

DRUGS (1)
  1. MYSLEE [Suspect]
     Indication: SLEEP DISORDER
     Dosage: 10 MG
     Route: 048
     Dates: end: 20051012

REACTIONS (4)
  - AMNESIA [None]
  - DELIRIUM [None]
  - SLEEP TALKING [None]
  - SLEEP WALKING [None]
